FAERS Safety Report 22357203 (Version 13)
Quarter: 2024Q1

REPORT INFORMATION
  Report Type: Report from Study
  Country: GB (occurrence: GB)
  Receive Date: 20230524
  Receipt Date: 20240307
  Transmission Date: 20240410
  Serious: Yes (Hospitalization)
  Sender: FDA-Public Use
  Company Number: GB-ABBVIE-4697854

PATIENT
  Age: 62 Year
  Sex: Female

DRUGS (11)
  1. CARBIDOPA\LEVODOPA [Suspect]
     Active Substance: CARBIDOPA\LEVODOPA
     Indication: Parkinson^s disease
     Dosage: 20MGS/5MGS; MD: 6.0, ED: 1.0, CR: 2.6, END DATE: 2023
     Route: 050
     Dates: start: 202303
  2. CARBIDOPA\LEVODOPA [Suspect]
     Active Substance: CARBIDOPA\LEVODOPA
     Dosage: MD: 6.0 MLS CR:  2.6 ML/HR  ED:1.0ML, FIRST ADMIN DATE 2023
     Route: 050
     Dates: end: 20231001
  3. CARBIDOPA\LEVODOPA [Suspect]
     Active Substance: CARBIDOPA\LEVODOPA
     Route: 050
  4. ROTIGOTINE [Concomitant]
     Active Substance: ROTIGOTINE
     Indication: Parkinson^s disease
     Dosage: FREQUENCY TEXT: OVER 24 HOURS, APPLIED AT 18:00
     Route: 061
  5. BENSERAZIDE HYDROCHLORIDE\LEVODOPA [Concomitant]
     Active Substance: BENSERAZIDE HYDROCHLORIDE\LEVODOPA
     Indication: Parkinson^s disease
     Dosage: 1 AT 0630
  6. BENSERAZIDE HYDROCHLORIDE\LEVODOPA [Concomitant]
     Active Substance: BENSERAZIDE HYDROCHLORIDE\LEVODOPA
     Indication: Parkinson^s disease
     Dosage: FREQUENCY TEXT: 2 DISPERSIBLE TABLET AT 6:30 AM
     Route: 065
  7. BENSERAZIDE HYDROCHLORIDE\LEVODOPA [Concomitant]
     Active Substance: BENSERAZIDE HYDROCHLORIDE\LEVODOPA
     Indication: Parkinson^s disease
     Dosage: 12.5/50 MGS, 1 AT 08:00 AND 18:00.
  8. POLYETHYLENE GLYCOL 3350\POTASSIUM CHLORIDE\SODIUM BICARBONATE\SODIUM [Concomitant]
     Active Substance: POLYETHYLENE GLYCOL 3350\POTASSIUM CHLORIDE\SODIUM BICARBONATE\SODIUM CHLORIDE
     Indication: Bowel movement irregularity
     Dosage: 1-2 SACHETS?FREQUENCY TEXT: DAILY
  9. CARBIDOPA\LEVODOPA [Concomitant]
     Active Substance: CARBIDOPA\LEVODOPA
     Indication: Parkinson^s disease
     Dosage: 25/100MG X1?FREQUENCY TEXT: AT 06:00
     Route: 048
  10. SINEMET CR [Concomitant]
     Active Substance: CARBIDOPA\LEVODOPA
     Indication: Parkinson^s disease
     Dosage: HALF SINEMET CR?25/100MGX1?FREQUENCY TEXT: AT 22:30
     Route: 048
  11. CARBIDOPA\LEVODOPA [Concomitant]
     Active Substance: CARBIDOPA\LEVODOPA
     Indication: Parkinson^s disease
     Dosage: TIME INTERVAL: 0.14285714 DAYS: 25/100 MG

REACTIONS (49)
  - Balance disorder [Unknown]
  - Stress [Not Recovered/Not Resolved]
  - Stoma site pain [Not Recovered/Not Resolved]
  - Feeling abnormal [Not Recovered/Not Resolved]
  - Feeling hot [Not Recovered/Not Resolved]
  - Depression [Not Recovered/Not Resolved]
  - Device kink [Recovered/Resolved]
  - Weight decreased [Recovered/Resolved]
  - Stoma site hypergranulation [Not Recovered/Not Resolved]
  - Depressed mood [Not Recovered/Not Resolved]
  - Mobility decreased [Not Recovered/Not Resolved]
  - Wound [Unknown]
  - Device issue [Not Recovered/Not Resolved]
  - Anxiety [Not Recovered/Not Resolved]
  - Incoherent [Not Recovered/Not Resolved]
  - Dyskinesia [Unknown]
  - Device breakage [Not Recovered/Not Resolved]
  - Therapeutic product effect incomplete [Not Recovered/Not Resolved]
  - Gait disturbance [Unknown]
  - Musculoskeletal disorder [Not Recovered/Not Resolved]
  - Stoma site discharge [Recovered/Resolved]
  - Stoma site erythema [Not Recovered/Not Resolved]
  - Muscle rigidity [Not Recovered/Not Resolved]
  - Fall [Not Recovered/Not Resolved]
  - Abnormal dreams [Not Recovered/Not Resolved]
  - Hallucination [Not Recovered/Not Resolved]
  - Tremor [Not Recovered/Not Resolved]
  - Chills [Not Recovered/Not Resolved]
  - Staphylococcal infection [Unknown]
  - Device occlusion [Recovered/Resolved]
  - Psychiatric symptom [Not Recovered/Not Resolved]
  - Constipation [Recovered/Resolved]
  - Musculoskeletal stiffness [Unknown]
  - Device difficult to use [Recovered/Resolved]
  - Device leakage [Not Recovered/Not Resolved]
  - Stoma site discharge [Not Recovered/Not Resolved]
  - Urinary tract infection [Recovering/Resolving]
  - Freezing phenomenon [Not Recovered/Not Resolved]
  - Constipation [Unknown]
  - Candida infection [Unknown]
  - Stoma site infection [Recovering/Resolving]
  - Nervousness [Recovering/Resolving]
  - Device occlusion [Not Recovered/Not Resolved]
  - Orthostatic hypotension [Unknown]
  - Gastrointestinal tube removal [Unknown]
  - Sensitive skin [Not Recovered/Not Resolved]
  - Stoma site reaction [Not Recovered/Not Resolved]
  - Incorrect dose administered [Recovering/Resolving]
  - Anxiety [Not Recovered/Not Resolved]

NARRATIVE: CASE EVENT DATE: 20230101
